FAERS Safety Report 9918816 (Version 6)
Quarter: 2014Q3

REPORT INFORMATION
  Report Type: Report from Study
  Country: US (occurrence: US)
  Receive Date: 20140224
  Receipt Date: 20140813
  Transmission Date: 20150326
  Serious: Yes (Death, Hospitalization, Other)
  Sender: FDA-Public Use
  Company Number: US-BAYER-2014-028187

PATIENT
  Age: 84 Year
  Sex: Male
  Weight: 84.8 kg

DRUGS (6)
  1. ADEMPAS [Suspect]
     Active Substance: RIOCIGUAT
     Indication: COR PULMONALE CHRONIC
     Dosage: 1.5 MG, TID
     Route: 048
     Dates: start: 20140227, end: 2014
  2. ADEMPAS [Suspect]
     Active Substance: RIOCIGUAT
     Indication: COR PULMONALE CHRONIC
     Dosage: 2 MG, TID
     Route: 048
     Dates: start: 20140129
  3. TIZANIDINE [Suspect]
     Active Substance: TIZANIDINE
     Indication: NECK PAIN
  4. COUMADIN [Concomitant]
     Active Substance: WARFARIN SODIUM
     Dosage: UNK
  5. ADEMPAS [Suspect]
     Active Substance: RIOCIGUAT
     Indication: COR PULMONALE CHRONIC
     Dosage: 2 MG, TID
     Route: 048
     Dates: start: 20131101
  6. ADEMPAS [Suspect]
     Active Substance: RIOCIGUAT
     Indication: COR PULMONALE CHRONIC
     Dosage: 2 MG, TID
     Route: 048
     Dates: start: 2014

REACTIONS (11)
  - Dysarthria [None]
  - Lymphadenopathy [None]
  - Pneumonia [None]
  - Hypotension [None]
  - Lymphoma [None]
  - Dyspnoea [Not Recovered/Not Resolved]
  - Hospitalisation [None]
  - Blood pressure abnormal [None]
  - Death [Fatal]
  - Asthenia [None]
  - Drug interaction [None]
